FAERS Safety Report 24680139 (Version 1)
Quarter: 2024Q4

REPORT INFORMATION
  Report Type: Spontaneous
  Country: US (occurrence: US)
  Receive Date: 20241129
  Receipt Date: 20241129
  Transmission Date: 20250115
  Serious: Yes (Life-Threatening, Hospitalization, Other)
  Sender: BRACCO
  Company Number: US-BRACCO-2024US00035

PATIENT
  Age: 79 Year
  Sex: Male

DRUGS (11)
  1. LUMASON [Suspect]
     Active Substance: SULFUR HEXAFLUORIDE
     Indication: Echocardiogram
     Dosage: UNK, SINGLE
     Dates: start: 20231224, end: 20231224
  2. LUMASON [Suspect]
     Active Substance: SULFUR HEXAFLUORIDE
     Indication: Echocardiogram
     Dosage: UNK, SINGLE
     Dates: start: 20231224, end: 20231224
  3. LUMASON [Suspect]
     Active Substance: SULFUR HEXAFLUORIDE
     Indication: Echocardiogram
     Dosage: UNK, SINGLE
     Dates: start: 20231224, end: 20231224
  4. DEMADEX [Concomitant]
     Active Substance: TORSEMIDE
  5. MORNIFLUMATE [Concomitant]
     Active Substance: MORNIFLUMATE
  6. IRON [Concomitant]
     Active Substance: IRON
  7. MEVACOR [Concomitant]
     Active Substance: LOVASTATIN
  8. PACERONE [Concomitant]
     Active Substance: AMIODARONE HYDROCHLORIDE
  9. SIMVASTATIN [Concomitant]
     Active Substance: SIMVASTATIN
  10. TOPROL XL [Concomitant]
     Active Substance: METOPROLOL SUCCINATE
  11. TYLENOL [Concomitant]
     Active Substance: ACETAMINOPHEN

REACTIONS (3)
  - Atrial fibrillation [Recovered/Resolved]
  - Oxygen saturation decreased [Recovered/Resolved]
  - Hypotension [Recovered/Resolved]

NARRATIVE: CASE EVENT DATE: 20231224
